FAERS Safety Report 10986667 (Version 4)
Quarter: 2015Q2

REPORT INFORMATION
  Report Type: Spontaneous
  Country: BY (occurrence: None)
  Receive Date: 20150402
  Receipt Date: 20150515
  Transmission Date: 20150821
  Serious: Yes (Other)
  Sender: FDA-Public Use
  Company Number: 2015SGN00489

PATIENT
  Age: 19 Year
  Sex: Female

DRUGS (16)
  1. DEXAMETHASONE (DEXAMETHASONE) [Concomitant]
     Active Substance: DEXAMETHASONE
  2. BISEPTOL (SULFAMETHOXAZOLE, TRIMETHOPRIM) [Concomitant]
  3. ADCETRIS [Suspect]
     Active Substance: BRENTUXIMAB VEDOTIN
     Indication: HODGKIN^S DISEASE
     Route: 042
     Dates: start: 20150122, end: 20150122
  4. FLUCONAZOLUM (FLUCONAZOLE) [Concomitant]
  5. COTRIMOXAZOLE (SULFAMETHOXAZOLE, TRIMETHOPRIM) [Concomitant]
  6. OMEPRAZOLE (OMEPRAZOLE) [Concomitant]
     Active Substance: OMEPRAZOLE
  7. CLEMASTINE (CLEMASTINE) [Concomitant]
  8. ALUMINUM PHOSPHATE (ALUMINIUM PHOSPHATE) [Concomitant]
  9. OCTAGAM (IMMUNOGLOBULIN HUMAN NORMAL) [Concomitant]
  10. AVELOX (MOXIFLOXACIN HYDROCHLORIDE) [Concomitant]
  11. BENDAMUSTINE (BENDAMUSTINE) (BENDAMUSTINE) [Concomitant]
     Active Substance: BENDAMUSTINE
  12. COLISTIN (COLISTIMETHATE SODIUM) [Concomitant]
  13. PLATELETS, CONCENTRATED (PLATELET CONCENTRATED) [Concomitant]
  14. GRANOCYTE  (ALBUMIN, LENOGRASTIM) [Concomitant]
  15. KYTRIL (GRANISETRON HYDROCHLORIDE) [Concomitant]
  16. ZYVOX [Concomitant]
     Active Substance: LINEZOLID

REACTIONS (7)
  - Bone marrow transplant [None]
  - Cytomegalovirus test positive [None]
  - Anaemia [None]
  - Thrombocytopenia [None]
  - Leukopenia [None]
  - Febrile neutropenia [None]
  - Upper respiratory tract infection [None]

NARRATIVE: CASE EVENT DATE: 20150124
